FAERS Safety Report 8298731-9 (Version None)
Quarter: 2012Q2

REPORT INFORMATION
  Report Type: 
  Country: None (occurrence: None)
  Receive Date: 20120419
  Receipt Date: 20120409
  Transmission Date: 20120825
  Serious: Yes (Hospitalization, Other)
  Sender: FDA-Public Use
  Company Number: US-VERTEX PHARMACEUTICALS INC.-AE-2012-004963

PATIENT
  Sex: Female

DRUGS (12)
  1. RIBAVIRIN [Concomitant]
     Dates: start: 20120301, end: 20120301
  2. INCIVEK [Suspect]
     Route: 048
     Dates: start: 20120323, end: 20120404
  3. RIBAVIRIN [Concomitant]
     Dates: start: 20120201, end: 20120201
  4. RIBAVIRIN [Concomitant]
     Dates: start: 20120323, end: 20120404
  5. PEGASYS [Concomitant]
     Route: 058
     Dates: start: 20120323, end: 20120404
  6. INCIVEK [Suspect]
     Route: 048
     Dates: start: 20120201, end: 20120201
  7. INCIVEK [Suspect]
     Route: 048
     Dates: start: 20120301, end: 20120301
  8. RIBAVIRIN [Concomitant]
     Indication: HEPATITIS C
     Dates: start: 20120101, end: 20120101
  9. INCIVEK [Suspect]
     Indication: HEPATITIS C
     Route: 048
     Dates: start: 20120101, end: 20120101
  10. PEGASYS [Concomitant]
     Indication: HEPATITIS C
     Dates: start: 20120101, end: 20120101
  11. PEGASYS [Concomitant]
     Dates: start: 20120301, end: 20120301
  12. PEGASYS [Concomitant]
     Dates: start: 20120201, end: 20120201

REACTIONS (2)
  - EPISTAXIS [None]
  - TRANSFUSION [None]
